FAERS Safety Report 4622821-2 (Version None)
Quarter: 2005Q1

REPORT INFORMATION
  Report Type: 
  Country: None (occurrence: None)
  Receive Date: 20050329
  Receipt Date: 20050329
  Transmission Date: 20050727
  Serious: Yes (Disabling)
  Sender: FDA-Public Use
  Company Number: None

PATIENT
  Sex: Male

DRUGS (1)
  1. PHENYTOIN [Suspect]
     Indication: CONVULSION
     Dosage: 200 MG Q AM 300 MG Q PM
     Dates: start: 19990201

REACTIONS (2)
  - LETHARGY [None]
  - PHARMACEUTICAL PRODUCT COMPLAINT [None]
